FAERS Safety Report 20999013 (Version 2)
Quarter: 2022Q3

REPORT INFORMATION
  Report Type: Report from Study
  Country: US (occurrence: US)
  Receive Date: 20220623
  Receipt Date: 20220702
  Transmission Date: 20221027
  Serious: Yes (Other)
  Sender: FDA-Public Use
  Company Number: US-NOVARTISTESTPH-NVSC2022US141872

PATIENT
  Age: 33 Year
  Sex: Male
  Weight: 101.59 kg

DRUGS (1)
  1. GILENYA [Suspect]
     Active Substance: FINGOLIMOD HYDROCHLORIDE
     Indication: Multiple sclerosis
     Dosage: 0.5 MG, QD
     Route: 048
     Dates: start: 20220619, end: 20220620

REACTIONS (3)
  - Bradycardia [Recovered/Resolved]
  - Chest pain [Recovered/Resolved]
  - Dizziness [Unknown]

NARRATIVE: CASE EVENT DATE: 20220619
